FAERS Safety Report 20470790 (Version 2)
Quarter: 2022Q2

REPORT INFORMATION
  Report Type: Spontaneous
  Country: US (occurrence: US)
  Receive Date: 20220214
  Receipt Date: 20220519
  Transmission Date: 20220721
  Serious: No
  Sender: FDA-Public Use
  Company Number: US-KALA PHARAMACEUTICALS-2021KLA00113

PATIENT
  Sex: Female
  Weight: 58.503 kg

DRUGS (8)
  1. EYSUVIS [Suspect]
     Active Substance: LOTEPREDNOL ETABONATE
     Indication: Dry eye
     Dosage: 1 DROP, 4X/DAY IN EACH EYE FOR 2 WEEKS
     Route: 047
     Dates: start: 20211031, end: 20211105
  2. UNSPECIFIED INGREDIENT [Suspect]
     Active Substance: UNSPECIFIED INGREDIENT
     Dosage: UNK
     Route: 061
  3. RESTASIS [Concomitant]
     Active Substance: CYCLOSPORINE
  4. UNSPECIFIED HERBALS [Concomitant]
  5. HERBALS\TURMERIC [Concomitant]
     Active Substance: HERBALS\TURMERIC
  6. COLLAGEN [Concomitant]
     Active Substance: COLLAGEN
  7. BIOTIN [Concomitant]
     Active Substance: BIOTIN
  8. FISH OIL [Concomitant]
     Active Substance: FISH OIL

REACTIONS (5)
  - Skin reaction [Recovering/Resolving]
  - Skin burning sensation [Recovering/Resolving]
  - Exposure via skin contact [Recovered/Resolved]
  - Scar [Unknown]
  - Chemical burn of skin [Unknown]

NARRATIVE: CASE EVENT DATE: 20210101
